FAERS Safety Report 14951606 (Version 1)
Quarter: 2018Q2

REPORT INFORMATION
  Report Type: Spontaneous
  Country: US (occurrence: US)
  Receive Date: 20180509
  Receipt Date: 20180509
  Transmission Date: 20180711
  Serious: No
  Sender: FDA-Public Use
  Company Number: None

PATIENT
  Age: 53 Year
  Sex: Female

DRUGS (1)
  1. DESCOVY [Suspect]
     Active Substance: EMTRICITABINE\TENOFOVIR ALAFENAMIDE FUMARATE
     Indication: SPOROTRICHOSIS
     Route: 048
     Dates: start: 20171226

REACTIONS (2)
  - Pruritus [None]
  - Skin disorder [None]

NARRATIVE: CASE EVENT DATE: 20171226
